FAERS Safety Report 5782612-6 (Version None)
Quarter: 2008Q2

REPORT INFORMATION
  Report Type: 
  Country: None (occurrence: None)
  Receive Date: 20080624
  Receipt Date: 20080613
  Transmission Date: 20081010
  Serious: Yes (Life-Threatening, Other)
  Sender: FDA-Public Use
  Company Number: JP-ABBOTT-08P-087-0453677-00

PATIENT
  Sex: Female

DRUGS (5)
  1. CEFZON [Suspect]
     Indication: ACUTE TONSILLITIS
     Route: 048
     Dates: start: 20080518, end: 20080518
  2. LOXOPROFEN [Suspect]
     Indication: ACUTE TONSILLITIS
     Route: 048
     Dates: start: 20080518, end: 20080518
  3. DICLOFENAC SODIUM [Suspect]
     Indication: ACUTE TONSILLITIS
     Dosage: UID, DAILY
     Route: 054
     Dates: start: 20080518, end: 20080518
  4. TEPRENONE [Suspect]
     Indication: GASTRITIS
     Route: 048
     Dates: start: 20080518, end: 20080518
  5. DICKININ [Suspect]
     Indication: HEADACHE
     Route: 048
     Dates: start: 20080515, end: 20080518

REACTIONS (6)
  - DYSPNOEA [None]
  - FEELING ABNORMAL [None]
  - LIP SWELLING [None]
  - PULMONARY VALVE STENOSIS [None]
  - TOXIC EPIDERMAL NECROLYSIS [None]
  - WHEEZING [None]
